FAERS Safety Report 25434209 (Version 1)
Quarter: 2025Q2

REPORT INFORMATION
  Report Type: Report from Study
  Country: US (occurrence: US)
  Receive Date: 20250613
  Receipt Date: 20250613
  Transmission Date: 20250716
  Serious: Yes (Hospitalization)
  Sender: pharmaAND
  Company Number: US-Pharmaand-2025000649

PATIENT
  Age: 60 Year
  Sex: Female

DRUGS (1)
  1. RUBRACA [Suspect]
     Active Substance: RUCAPARIB CAMSYLATE
     Indication: Ovarian cancer
     Dosage: 400MG 2 TIMES DAILY
     Route: 048
     Dates: start: 202409

REACTIONS (2)
  - Hospitalisation [Unknown]
  - Injury [Not Recovered/Not Resolved]
